FAERS Safety Report 6265842-9 (Version None)
Quarter: 2009Q3

REPORT INFORMATION
  Report Type: 
  Country: None (occurrence: None)
  Receive Date: 20090708
  Receipt Date: 20090708
  Transmission Date: 20100115
  Serious: Yes (Other)
  Sender: FDA-Public Use
  Company Number: None

PATIENT
  Age: 20 Year
  Sex: Female
  Weight: 85.7298 kg

DRUGS (1)
  1. DEPO-PROVERA [Suspect]
     Indication: CONTRACEPTION
     Dosage: ? EVERY 3 MONTHS IM
     Route: 030
     Dates: start: 20070401, end: 20080401

REACTIONS (2)
  - INFERTILITY [None]
  - IRRITABILITY [None]
